FAERS Safety Report 16357135 (Version 4)
Quarter: 2020Q1

REPORT INFORMATION
  Report Type: Report from Study
  Country: CO (occurrence: CO)
  Receive Date: 20190527
  Receipt Date: 20200306
  Transmission Date: 20200409
  Serious: Yes (Hospitalization, Other)
  Sender: FDA-Public Use
  Company Number: CO-ASTELLAS-2019US022206

PATIENT
  Age: 40 Year
  Sex: Female

DRUGS (12)
  1. SUCRALFATE. [Concomitant]
     Active Substance: SUCRALFATE
     Indication: DYSPEPSIA
     Route: 065
  2. VERAPAMIL [Concomitant]
     Active Substance: VERAPAMIL HYDROCHLORIDE
     Dosage: 80 MG, ONCE DAILY (FOR 30 DAYS)
     Route: 048
     Dates: start: 20190304
  3. TACROLIMUS. [Suspect]
     Active Substance: TACROLIMUS
     Dosage: 2 MG (2 CAPSULE OF 1 MG), ONCE DAILY
     Route: 048
     Dates: start: 20190224
  4. PREDNISOLONE. [Concomitant]
     Active Substance: PREDNISOLONE
     Indication: RENAL TRANSPLANT
     Route: 048
     Dates: start: 20190304
  5. TRIMETHOPRIM. [Concomitant]
     Active Substance: TRIMETHOPRIM
     Dosage: 80MG / 400MG, ONCE DAILY
     Route: 065
     Dates: start: 20190522
  6. TRIMETHOPRIM. [Concomitant]
     Active Substance: TRIMETHOPRIM
     Indication: PRODUCT USED FOR UNKNOWN INDICATION
     Dosage: 80MG / 400MG, ONCE DAILY
     Route: 065
     Dates: end: 20190509
  7. TACROLIMUS. [Suspect]
     Active Substance: TACROLIMUS
     Indication: RENAL TRANSPLANT
     Dosage: 7 MG (1 CAPSULE OF 5 MG AND 2 CAPSULES OF 1 MG) ONCE DAILY
     Route: 048
     Dates: start: 20190304, end: 20200223
  8. EUTIROX [Concomitant]
     Active Substance: LEVOTHYROXINE SODIUM
     Indication: HYPOTHYROIDISM
     Dosage: 100 MG, ONCE DAILY (500MG WEEKLY)
     Route: 048
     Dates: start: 2012
  9. TACROLIMUS. [Suspect]
     Active Substance: TACROLIMUS
     Indication: RENAL TRANSPLANT
     Dosage: 5 MG (1 CAPSULE OF 5 MG), ONCE DAILY
     Route: 048
     Dates: start: 20200224
  10. MYCOPHENOLATE [Concomitant]
     Active Substance: MYCOPHENOLIC ACID
     Indication: RENAL TRANSPLANT
     Route: 048
     Dates: start: 20190304
  11. VERAPAMIL [Concomitant]
     Active Substance: VERAPAMIL HYDROCHLORIDE
     Indication: BLOOD PRESSURE ABNORMAL
     Route: 065
  12. VALGANCICLOVIR. [Concomitant]
     Active Substance: VALGANCICLOVIR
     Indication: RENAL TRANSPLANT
     Route: 065

REACTIONS (5)
  - Urinary tract infection [Recovered/Resolved]
  - Pyelonephritis [Unknown]
  - Sepsis [Recovered/Resolved]
  - Incorrect product formulation administered [Unknown]
  - Seroma [Recovering/Resolving]

NARRATIVE: CASE EVENT DATE: 20190508
